FAERS Safety Report 25941174 (Version 1)
Quarter: 2025Q4

REPORT INFORMATION
  Report Type: Spontaneous
  Country: US (occurrence: US)
  Receive Date: 20251020
  Receipt Date: 20251020
  Transmission Date: 20260117
  Serious: No
  Sender: BIOMARIN
  Company Number: US-BIOMARINAP-US-2025-169497

PATIENT
  Age: 10 Month
  Sex: Female

DRUGS (1)
  1. VOXZOGO [Suspect]
     Active Substance: VOSORITIDE
     Indication: Osteochondrodysplasia
     Dosage: UNK

REACTIONS (2)
  - Injection site erythema [Unknown]
  - Injection site induration [Unknown]

NARRATIVE: CASE EVENT DATE: 20251016
